FAERS Safety Report 14753328 (Version 1)
Quarter: 2018Q2

REPORT INFORMATION
  Report Type: Spontaneous
  Country: US (occurrence: US)
  Receive Date: 20180412
  Receipt Date: 20180412
  Transmission Date: 20180711
  Serious: No
  Sender: FDA-Public Use
  Company Number: US-ALLERGAN-1715956US

PATIENT
  Age: 5 Decade
  Sex: Female

DRUGS (1)
  1. FEMRING [Suspect]
     Active Substance: ESTRADIOL ACETATE
     Indication: HOT FLUSH
     Dosage: 0.5 MG, UNK
     Route: 067

REACTIONS (4)
  - Breast pain [Recovering/Resolving]
  - Breast enlargement [Recovering/Resolving]
  - Breast discomfort [Recovering/Resolving]
  - Intentional device misuse [Unknown]
